FAERS Safety Report 6035396-0 (Version None)
Quarter: 2009Q1

REPORT INFORMATION
  Report Type: 
  Country: None (occurrence: None)
  Receive Date: 20090112
  Receipt Date: 20090112
  Transmission Date: 20090719
  Serious: Yes (Hospitalization, Other)
  Sender: FDA-Public Use
  Company Number: None

PATIENT
  Age: 41 Year
  Sex: Female
  Weight: 56.6996 kg

DRUGS (1)
  1. LEVETIRACETAM [Suspect]
     Indication: EPILEPSY
     Dosage: 1000MG TWICE A DAY PO
     Route: 048
     Dates: start: 20081128, end: 20081219

REACTIONS (5)
  - CONTUSION [None]
  - EXCORIATION [None]
  - FACIAL BONES FRACTURE [None]
  - GRAND MAL CONVULSION [None]
  - LACERATION [None]
